FAERS Safety Report 20963601 (Version 5)
Quarter: 2022Q3

REPORT INFORMATION
  Report Type: Report from Study
  Country: PH (occurrence: None)
  Receive Date: 20220615
  Receipt Date: 20220801
  Transmission Date: 20221026
  Serious: Yes (Life-Threatening, Hospitalization)
  Sender: FDA-Public Use
  Company Number: 2022A219225

PATIENT
  Age: 70 Year
  Sex: Male
  Weight: 70 kg

DRUGS (19)
  1. CARBOPLATIN [Suspect]
     Active Substance: CARBOPLATIN
     Indication: HER2 mutant non-small cell lung cancer
     Dosage: 464.0MG ONCE/SINGLE ADMINISTRATION
     Route: 042
     Dates: start: 20220531, end: 20220531
  2. CARBOPLATIN [Suspect]
     Active Substance: CARBOPLATIN
     Indication: HER2 mutant non-small cell lung cancer
     Dosage: 358.0MG ONCE/SINGLE ADMINISTRATION
     Route: 042
     Dates: start: 20220704, end: 20220704
  3. TRASTUZUMAB DERUXTECAN [Suspect]
     Active Substance: TRASTUZUMAB DERUXTECAN
     Indication: HER2 mutant non-small cell lung cancer
     Dosage: 306.6MG ONCE/SINGLE ADMINISTRATION
     Route: 042
     Dates: start: 20220531, end: 20220531
  4. TRASTUZUMAB DERUXTECAN [Suspect]
     Active Substance: TRASTUZUMAB DERUXTECAN
     Indication: HER2 mutant non-small cell lung cancer
     Dosage: 222.5MG ONCE/SINGLE ADMINISTRATION
     Route: 042
     Dates: start: 20220704, end: 20220704
  5. DURVALUMAB [Suspect]
     Active Substance: DURVALUMAB
     Indication: HER2 mutant non-small cell lung cancer
     Dosage: 1120.0MG ONCE/SINGLE ADMINISTRATION
     Route: 042
     Dates: start: 20220531, end: 20220531
  6. DURVALUMAB [Suspect]
     Active Substance: DURVALUMAB
     Indication: HER2 mutant non-small cell lung cancer
     Dosage: 1120.0MG ONCE/SINGLE ADMINISTRATION
     Route: 042
     Dates: start: 20220704, end: 20220704
  7. ATORVASTATIN [Concomitant]
     Active Substance: ATORVASTATIN
     Indication: Dyslipidaemia
     Route: 048
     Dates: start: 2012
  8. TAMSULOSIN [Concomitant]
     Active Substance: TAMSULOSIN
     Indication: Benign prostatic hyperplasia
     Route: 048
     Dates: start: 2019
  9. PHOSPHOLIPIDS (ESSENTIALE) [Concomitant]
     Indication: Supplementation therapy
     Route: 048
     Dates: start: 20210501
  10. PIZOTYLINE [Concomitant]
     Active Substance: PIZOTYLINE
     Indication: Supplementation therapy
     Route: 048
     Dates: start: 20210201
  11. CALCIUM\VITAMIN D [Concomitant]
     Active Substance: CALCIUM\VITAMIN D
     Indication: Supplementation therapy
     Route: 048
     Dates: start: 20210201
  12. LEVETIRACETAM [Concomitant]
     Active Substance: LEVETIRACETAM
     Indication: Anticonvulsant drug level
     Route: 048
     Dates: start: 20210201
  13. FENTANYL [Concomitant]
     Active Substance: FENTANYL
     Indication: Analgesic drug level
     Route: 061
     Dates: start: 20220301
  14. FENTANYL [Concomitant]
     Active Substance: FENTANYL
     Indication: Analgesic drug level
     Dosage: 100.0UG AS REQUIRED
     Route: 060
     Dates: start: 20220510
  15. BACLOFEN [Concomitant]
     Active Substance: BACLOFEN
     Indication: Muscle relaxant therapy
     Route: 048
     Dates: start: 20220504
  16. PREGABALIN [Concomitant]
     Active Substance: PREGABALIN
     Indication: Neuralgia
     Route: 048
     Dates: start: 20210201
  17. CEFEPIME [Concomitant]
     Active Substance: CEFEPIME HYDROCHLORIDE
     Indication: Pneumonia
     Route: 042
     Dates: start: 20220602, end: 20220605
  18. ACETAMINOPHEN [Concomitant]
     Active Substance: ACETAMINOPHEN
     Indication: Pneumonia
     Dosage: 500.0MG AS REQUIRED
     Route: 048
     Dates: start: 20220601, end: 20220605
  19. CEFIXIME [Concomitant]
     Active Substance: CEFIXIME
     Indication: Pneumonia
     Route: 048
     Dates: start: 20220606, end: 20220614

REACTIONS (1)
  - Thrombocytopenia [Recovered/Resolved]

NARRATIVE: CASE EVENT DATE: 20220607
